FAERS Safety Report 5189917-0 (Version None)
Quarter: 2006Q4

REPORT INFORMATION
  Report Type: 
  Country: None (occurrence: None)
  Receive Date: 20061215
  Receipt Date: 20061205
  Transmission Date: 20070319
  Serious: Yes (Other)
  Sender: FDA-Public Use
  Company Number: 2006150029

PATIENT
  Age: 65 Year
  Sex: Male

DRUGS (4)
  1. LISTERINE (MENTHOL, METHYL SALICYLATE, EUCALYPTOL, THYMOL) [Suspect]
     Indication: DENTAL DISORDER PROPHYLAXIS
     Dosage: TID, ORAL
     Route: 048
     Dates: start: 20061128, end: 20061204
  2. AMOXICILLIN [Concomitant]
  3. ANALGESICS (ANALGESICS) [Concomitant]
  4. DICLOFENAC SODIUM [Concomitant]

REACTIONS (1)
  - STOMATITIS [None]
